FAERS Safety Report 13761768 (Version 2)
Quarter: 2017Q3

REPORT INFORMATION
  Report Type: Report from Study
  Country: BR (occurrence: BR)
  Receive Date: 20170718
  Receipt Date: 20170907
  Transmission Date: 20171127
  Serious: Yes (Hospitalization)
  Sender: FDA-Public Use
  Company Number: BR-UCBSA-2017027571

PATIENT
  Age: 29 Year
  Sex: Male

DRUGS (5)
  1. ROTIGOTINE [Suspect]
     Active Substance: ROTIGOTINE
     Dosage: 6 MG, ONCE DAILY (QD)
     Route: 062
  2. SELEGILINE [Concomitant]
     Active Substance: SELEGILINE
     Indication: PRODUCT USED FOR UNKNOWN INDICATION
  3. ROTIGOTINE [Suspect]
     Active Substance: ROTIGOTINE
     Dosage: 6 MG, ONCE DAILY (QD)
     Route: 062
  4. ROTIGOTINE [Suspect]
     Active Substance: ROTIGOTINE
     Indication: PARKINSON^S DISEASE
     Dosage: 4 MG, ONCE DAILY (QD)
     Route: 062
     Dates: start: 201611
  5. ROTIGOTINE [Suspect]
     Active Substance: ROTIGOTINE
     Dosage: 8 MG, ONCE DAILY (QD)
     Route: 062

REACTIONS (10)
  - Decreased appetite [Not Recovered/Not Resolved]
  - Autonomic nervous system imbalance [Not Recovered/Not Resolved]
  - Insomnia [Unknown]
  - Parkinson^s disease [Unknown]
  - Dermatitis contact [Unknown]
  - Platelet count decreased [Not Recovered/Not Resolved]
  - Hyperhidrosis [Not Recovered/Not Resolved]
  - Weight decreased [Not Recovered/Not Resolved]
  - Abdominal pain upper [Unknown]
  - Vomiting [Not Recovered/Not Resolved]

NARRATIVE: CASE EVENT DATE: 201611
